FAERS Safety Report 9059945 (Version 1)
Quarter: 2013Q1

REPORT INFORMATION
  Report Type: Spontaneous
  Country: US (occurrence: None)
  Receive Date: 20130207
  Receipt Date: 20130207
  Transmission Date: 20140127
  Serious: Yes (Hospitalization)
  Sender: FDA-Public Use
  Company Number: None

PATIENT
  Age: 62 Year
  Sex: Male
  Weight: 87 kg

DRUGS (1)
  1. ENZALUTAMIDE [Suspect]
     Indication: PROSTATE CANCER
     Route: 048
     Dates: start: 20121126, end: 20130104

REACTIONS (4)
  - Fatigue [None]
  - Mental status changes [None]
  - Failure to thrive [None]
  - Convulsion [None]
